FAERS Safety Report 8221236 (Version 3)
Quarter: 2020Q3

REPORT INFORMATION
  Report Type: Report from Study
  Country: US (occurrence: CA)
  Receive Date: 20111102
  Receipt Date: 20120711
  Transmission Date: 20201104
  Serious: Yes (Hospitalization)
  Sender: FDA-Public Use
  Company Number: CA-JNJFOC-20081100168

PATIENT
  Age: 65 Year
  Sex: Female
  Weight: 69 kg

DRUGS (13)
  1. CNTO 1275 [Suspect]
     Active Substance: USTEKINUMAB
     Indication: PSORIASIS
     Route: 058
     Dates: start: 20060525
  2. CNTO 1275 [Suspect]
     Active Substance: USTEKINUMAB
     Route: 058
     Dates: start: 20080103
  3. CNTO 1275 [Suspect]
     Active Substance: USTEKINUMAB
     Route: 058
     Dates: start: 20070719
  4. CRESTOR [Concomitant]
     Active Substance: ROSUVASTATIN CALCIUM
     Route: 048
     Dates: start: 20070428
  5. CNTO 1275 [Suspect]
     Active Substance: USTEKINUMAB
     Route: 058
     Dates: start: 20060817
  6. CNTO 1275 [Suspect]
     Active Substance: USTEKINUMAB
     Route: 058
     Dates: start: 20061109
  7. CNTO 1275 [Suspect]
     Active Substance: USTEKINUMAB
     Route: 058
     Dates: start: 20080619
  8. CNTO 1275 [Suspect]
     Active Substance: USTEKINUMAB
     Route: 058
     Dates: start: 20080911
  9. CNTO 1275 [Suspect]
     Active Substance: USTEKINUMAB
     Route: 058
     Dates: start: 20070426
  10. CNTO 1275 [Suspect]
     Active Substance: USTEKINUMAB
     Route: 058
     Dates: start: 20071011
  11. CNTO 1275 [Suspect]
     Active Substance: USTEKINUMAB
     Route: 058
     Dates: start: 20070131
  12. CNTO 1275 [Suspect]
     Active Substance: USTEKINUMAB
     Route: 058
     Dates: start: 20080326
  13. CNTO 1275 [Suspect]
     Active Substance: USTEKINUMAB
     Route: 058
     Dates: start: 20060427

REACTIONS (1)
  - Posterior reversible encephalopathy syndrome [Recovered/Resolved]

NARRATIVE: CASE EVENT DATE: 20081026
